FAERS Safety Report 16956471 (Version 11)
Quarter: 2020Q3

REPORT INFORMATION
  Report Type: Report from Study
  Country: ES (occurrence: ES)
  Receive Date: 20191024
  Receipt Date: 20200721
  Transmission Date: 20201102
  Serious: Yes (Hospitalization)
  Sender: FDA-Public Use
  Company Number: ES-ROCHE-2421092

PATIENT
  Age: 50 Year
  Sex: Female
  Weight: 65.7 kg

DRUGS (23)
  1. ARCOXIA [Concomitant]
     Active Substance: ETORICOXIB
     Indication: TUMOUR PAIN
     Dates: start: 20190911
  2. RO6874281 (FAP IL2V MAB) [Suspect]
     Active Substance: SIMLUKAFUSP ALFA
     Indication: METASTATIC NEOPLASM
     Dosage: DATE OF MOST RECENT DOSE OF RO6874281 10 MG PRIOR TO AE AND FIRST EPISODE OF SAE ONSET 18/SEP/2019 A
     Route: 042
     Dates: start: 20190918
  3. PARACETAMOL [Concomitant]
     Active Substance: ACETAMINOPHEN
     Dates: start: 20191023, end: 20191023
  4. METOCLOPRAMIDE. [Concomitant]
     Active Substance: METOCLOPRAMIDE
     Dates: start: 201906
  5. LORAZEPAM. [Concomitant]
     Active Substance: LORAZEPAM
     Indication: INSOMNIA
     Dates: start: 201901
  6. ENANTYUM [Concomitant]
     Active Substance: DEXKETOPROFEN TROMETAMOL
     Dates: start: 20190918, end: 20190918
  7. LORMETAZEPAM [Concomitant]
     Active Substance: LORMETAZEPAM
     Dates: start: 20191011, end: 20191023
  8. BROMAZEPAM [Concomitant]
     Active Substance: BROMAZEPAM
     Dates: start: 20191011
  9. PECFENT [Concomitant]
     Active Substance: FENTANYL CITRATE
     Indication: TUMOUR PAIN
     Dosage: 100 (UNIT NOT REPORTED)
     Dates: start: 201901
  10. OMEPRAZOLE. [Concomitant]
     Active Substance: OMEPRAZOLE
     Dates: start: 201901
  11. MOVICOL [Concomitant]
     Active Substance: POLYETHYLENE GLYCOL 3350\POTASSIUM CHLORIDE\SODIUM BICARBONATE\SODIUM CHLORIDE
     Dates: start: 201906
  12. RANITIDINE. [Concomitant]
     Active Substance: RANITIDINE
     Dates: start: 20191023, end: 20191023
  13. RANITIDINE. [Concomitant]
     Active Substance: RANITIDINE
     Dates: start: 20190918, end: 20190918
  14. ONDANSETRON [Concomitant]
     Active Substance: ONDANSETRON
     Dates: start: 20191023, end: 20191023
  15. ONDANSETRON [Concomitant]
     Active Substance: ONDANSETRON
     Dates: start: 20191011, end: 20191028
  16. LORAZEPAM. [Concomitant]
     Active Substance: LORAZEPAM
     Dates: start: 20191023
  17. DEXCHLORPHENIRAMINE [Concomitant]
     Active Substance: DEXCHLORPHENIRAMINE
     Dates: start: 20191023, end: 20191023
  18. ATEZOLIZUMAB. [Suspect]
     Active Substance: ATEZOLIZUMAB
     Indication: METASTATIC NEOPLASM
     Dosage: DATE OF MOST RECENT DOSE OF ATEZOLIZUMAB PRIOR TO AE AND FIRST EPISODE OF SAE ONSET 18/SEP/2019 AT 1
     Route: 042
     Dates: start: 20190918
  19. PARACETAMOL [Concomitant]
     Active Substance: ACETAMINOPHEN
     Dates: start: 20190918, end: 20190918
  20. DEXCHLORPHENIRAMINE [Concomitant]
     Active Substance: DEXCHLORPHENIRAMINE
     Dates: start: 20190918, end: 20190918
  21. DEXCHLORPHENIRAMINE [Concomitant]
     Active Substance: DEXCHLORPHENIRAMINE
     Dates: start: 20191027
  22. ONDANSETRON [Concomitant]
     Active Substance: ONDANSETRON
     Dates: start: 20190918, end: 20190918
  23. INACID [INDOMETACIN] [Concomitant]
     Dates: start: 20190919, end: 20191028

REACTIONS (1)
  - Capillary leak syndrome [Recovered/Resolved]

NARRATIVE: CASE EVENT DATE: 20190920
